FAERS Safety Report 5125245-7 (Version None)
Quarter: 2006Q4

REPORT INFORMATION
  Report Type: 
  Country: None (occurrence: None)
  Receive Date: 20061010
  Receipt Date: 20061010
  Transmission Date: 20070319
  Serious: Yes (Hospitalization)
  Sender: FDA-Public Use
  Company Number: None

PATIENT
  Age: 74 Year
  Sex: Male

DRUGS (10)
  1. GLYBURIDE [Suspect]
     Indication: DIABETES MELLITUS NON-INSULIN-DEPENDENT
     Dosage: 10 MG BID
     Dates: start: 19980801
  2. FERROUS SULFATE TAB [Concomitant]
  3. ASPIRIN [Concomitant]
  4. ZOCOR [Concomitant]
  5. HYDROCORTISONE ACETATE [Concomitant]
  6. FOSINOPRIL SODIUM [Concomitant]
  7. OMEPRAZOLE [Concomitant]
  8. VARDENAFIL [Concomitant]
  9. TRAMADOL HCL [Concomitant]
  10. HYDROCHLOROTHIAZIDE [Concomitant]

REACTIONS (2)
  - DIZZINESS [None]
  - HYPERHIDROSIS [None]
